FAERS Safety Report 6980506-1 (Version None)
Quarter: 2010Q3

REPORT INFORMATION
  Report Type: 
  Country: None (occurrence: None)
  Receive Date: 20100914
  Receipt Date: 20100902
  Transmission Date: 20110219
  Serious: Yes (Hospitalization)
  Sender: FDA-Public Use
  Company Number: PHHY2010US58645

PATIENT
  Sex: Female

DRUGS (1)
  1. FEMARA [Suspect]
     Indication: BREAST NEOPLASM
     Dosage: 2.5 MG, DAILY
     Route: 048
     Dates: start: 20100104

REACTIONS (1)
  - LUNG DISORDER [None]
